FAERS Safety Report 9237128 (Version 2)
Quarter: 2013Q2

REPORT INFORMATION
  Report Type: Spontaneous
  Country: US (occurrence: US)
  Receive Date: 20130417
  Receipt Date: 20130606
  Transmission Date: 20140414
  Serious: No
  Sender: FDA-Public Use
  Company Number: US-PFIZER INC-2013117738

PATIENT
  Age: 93 Year
  Sex: Male
  Weight: 63.49 kg

DRUGS (1)
  1. ADVIL PM [Suspect]
     Indication: SLEEP DISORDER
     Dosage: UNK
     Dates: start: 20130410

REACTIONS (1)
  - Drug ineffective [Unknown]
